FAERS Safety Report 4873013-3 (Version None)
Quarter: 2005Q4

REPORT INFORMATION
  Report Type: 
  Country: None (occurrence: None)
  Receive Date: 20051201
  Receipt Date: 20050714
  Transmission Date: 20060501
  Serious: No
  Sender: FDA-Public Use
  Company Number: 2005PV000361

PATIENT
  Age: 54 Year
  Sex: Female
  Weight: 104.3273 kg

DRUGS (20)
  1. BYETTA [Suspect]
     Indication: DIABETES MELLITUS NON-INSULIN-DEPENDENT
     Dosage: 5 MCG;TID;SC
     Route: 058
     Dates: start: 20050706
  2. GLUCOPHAGE [Concomitant]
  3. TRAZODONE [Concomitant]
  4. AMITRIPTYLINE HCL [Concomitant]
  5. WELLBUTRIN [Concomitant]
  6. LIPITOR [Concomitant]
  7. LEXAPRO [Concomitant]
  8. SEROQUEL [Concomitant]
  9. GLYBURIDE [Concomitant]
  10. SYNTHROID [Concomitant]
  11. TOPAMAX [Concomitant]
  12. METHADONE HCL [Concomitant]
  13. SOMA [Concomitant]
  14. CLINDAMYCIN [Concomitant]
  15. LORTAB [Concomitant]
  16. BISACODYL [Concomitant]
  17. MORPHINE [Concomitant]
  18. ESTRIN-D [Concomitant]
  19. ADVAIR DISKUS 100/50 [Concomitant]
  20. NYSTATIN [Concomitant]

REACTIONS (2)
  - DECREASED APPETITE [None]
  - WEIGHT DECREASED [None]
